FAERS Safety Report 8605679-6 (Version None)
Quarter: 2012Q3

REPORT INFORMATION
  Report Type: 
  Country: None (occurrence: None)
  Receive Date: 20120820
  Receipt Date: 20120813
  Transmission Date: 20120928
  Serious: Yes (Other)
  Sender: FDA-Public Use
  Company Number: FR-ROCHE-1061085

PATIENT
  Sex: Male

DRUGS (12)
  1. PROGRAF [Suspect]
     Indication: PRODUCT USED FOR UNKNOWN INDICATION
     Dates: start: 20110227
  2. PREDNISONE TAB [Suspect]
     Indication: PRODUCT USED FOR UNKNOWN INDICATION
     Dates: start: 20110304, end: 20120309
  3. SOLU-MEDROL [Suspect]
     Dates: start: 20120301, end: 20120303
  4. PREDNISONE TAB [Suspect]
     Dates: start: 20120310, end: 20120323
  5. BUMETANIDE [Suspect]
     Indication: PRODUCT USED FOR UNKNOWN INDICATION
     Route: 042
     Dates: start: 20110228, end: 20120306
  6. MABTHERA [Suspect]
     Indication: PRODUCT USED FOR UNKNOWN INDICATION
  7. SOLU-MEDROL [Suspect]
     Dates: start: 20120228
  8. CELLCEPT [Suspect]
     Indication: PRODUCT USED FOR UNKNOWN INDICATION
     Dates: start: 20110227
  9. SOLU-MEDROL [Suspect]
     Indication: PRODUCT USED FOR UNKNOWN INDICATION
     Dates: start: 20110227
  10. IRBESARTAN [Concomitant]
  11. FLIXOTIDE 250 [Concomitant]
     Dosage: 1 PUFF TWICE DAILY
  12. ROSUVASTATIN [Concomitant]

REACTIONS (1)
  - DIABETES MELLITUS [None]
